FAERS Safety Report 21636065 (Version 2)
Quarter: 2022Q4

REPORT INFORMATION
  Report Type: Spontaneous
  Country: CN (occurrence: None)
  Receive Date: 20221123
  Receipt Date: 20221130
  Transmission Date: 20230112
  Serious: Yes (Other)
  Sender: FDA-Public Use
  Company Number: CN-ROCHE-3221577

PATIENT
  Age: 57 Year
  Sex: Male

DRUGS (5)
  1. TRASTUZUMAB [Suspect]
     Active Substance: TRASTUZUMAB
     Indication: Metastatic salivary gland cancer
     Dosage: 21 DAYS AS A CYCLE
     Route: 065
     Dates: start: 20220902
  2. TRASTUZUMAB [Suspect]
     Active Substance: TRASTUZUMAB
     Indication: Metastases to lymph nodes
     Dosage: 23-SEP-2022, 16-OCT-2022, 08-NOV-2022, 21 DAYS AS A CYCLE
     Route: 065
  3. PERTUZUMAB [Suspect]
     Active Substance: PERTUZUMAB
     Indication: Metastases to lymph nodes
     Dosage: 21 DAYS AS A CYCLE
     Route: 065
     Dates: start: 20220902
  4. PERTUZUMAB [Suspect]
     Active Substance: PERTUZUMAB
     Indication: Metastases to lymph nodes
     Dosage: 23-SEP-2022, 16-OCT-2022, 08-NOV-2022, 21 DAYS AS A CYCLE
     Route: 065
  5. PACLITAXEL [Concomitant]
     Active Substance: PACLITAXEL
     Dosage: 21 DAYS AS A CYCLE
     Route: 065
     Dates: start: 20220902

REACTIONS (2)
  - Gastrointestinal disorder [Unknown]
  - Myelosuppression [Unknown]
